FAERS Safety Report 9195948 (Version 1)
Quarter: 2013Q1

REPORT INFORMATION
  Report Type: Report from Study
  Country: CA (occurrence: CA)
  Receive Date: 20130328
  Receipt Date: 20130328
  Transmission Date: 20140127
  Serious: Yes (Death, Hospitalization)
  Sender: FDA-Public Use
  Company Number: CA-JNJFOC-20130311177

PATIENT
  Sex: Male
  Weight: 83 kg

DRUGS (9)
  1. REMICADE [Suspect]
     Indication: COLITIS ULCERATIVE
     Route: 042
     Dates: start: 20111123, end: 20130130
  2. EZETROL [Concomitant]
     Route: 065
  3. LIPITOR [Concomitant]
     Route: 065
  4. FOLIC ACID [Concomitant]
     Route: 065
  5. ASA [Concomitant]
     Route: 065
  6. SYNTHROID [Concomitant]
     Route: 065
  7. NEXIUM [Concomitant]
     Route: 065
  8. CALCIUM AND VITAMIN D [Concomitant]
     Route: 065
  9. FOSAMAX [Concomitant]
     Route: 065

REACTIONS (2)
  - Lymphoma [Fatal]
  - Renal cancer [Unknown]
